FAERS Safety Report 9638952 (Version 2)
Quarter: 2013Q4

REPORT INFORMATION
  Report Type: Spontaneous
  Country: US (occurrence: US)
  Receive Date: 20131022
  Receipt Date: 20131022
  Transmission Date: 20140711
  Serious: No
  Sender: FDA-Public Use
  Company Number: US-BRISTOL-MYERS SQUIBB COMPANY-19127109

PATIENT
  Age: 92 Year
  Sex: Female

DRUGS (9)
  1. ELIQUIS [Suspect]
     Indication: ATRIAL FIBRILLATION
     Route: 048
     Dates: start: 20130525, end: 20130602
  2. EFFEXOR [Concomitant]
  3. OMEPRAZOLE [Concomitant]
  4. VERAPAMIL [Concomitant]
  5. TRAMADOL [Concomitant]
     Indication: PAIN
  6. METHOTREXATE [Concomitant]
  7. PRAVASTATIN SODIUM [Concomitant]
  8. FOLATE [Concomitant]
     Route: 048
  9. LEVOTHYROXINE [Concomitant]

REACTIONS (3)
  - Malaise [Recovered/Resolved]
  - Feeling abnormal [Recovered/Resolved]
  - Somnolence [Recovered/Resolved]
